FAERS Safety Report 9461931 (Version 2)
Quarter: 2014Q2

REPORT INFORMATION
  Report Type: Spontaneous
  Country: TW (occurrence: TW)
  Receive Date: 20130816
  Receipt Date: 20140408
  Transmission Date: 20141212
  Serious: Yes (Hospitalization, Other)
  Sender: FDA-Public Use
  Company Number: TW-BAYER-2013-098765

PATIENT
  Age: 28 Year
  Sex: Male

DRUGS (4)
  1. ASPIRIN TABLETS [Suspect]
     Indication: PYREXIA
     Dosage: UNK
  2. ASPIRIN TABLETS [Suspect]
     Indication: PNEUMONIA
  3. KETOROLAC [Suspect]
     Indication: PYREXIA
     Dosage: UNK
  4. KETOROLAC [Suspect]
     Indication: PNEUMONIA

REACTIONS (4)
  - Toxic epidermal necrolysis [None]
  - Eye burns [None]
  - Conjunctival irritation [None]
  - Punctate keratitis [None]
